FAERS Safety Report 6996881-8 (Version None)
Quarter: 2010Q3

REPORT INFORMATION
  Report Type: 
  Country: None (occurrence: None)
  Receive Date: 20100918
  Receipt Date: 20090806
  Transmission Date: 20110219
  Serious: No
  Sender: FDA-Public Use
  Company Number: US-WYE-H10521409

PATIENT
  Sex: Female
  Weight: 72.64 kg

DRUGS (2)
  1. PREMPRO [Suspect]
     Indication: HORMONE REPLACEMENT THERAPY
     Dosage: 0.45 MG DAILY, THEN 0.625 MG DAILY AT TIME OF THE EVENTS
     Route: 048
     Dates: start: 20090401
  2. NEXIUM [Concomitant]

REACTIONS (4)
  - BREAST PAIN [None]
  - NIPPLE EXUDATE BLOODY [None]
  - OEDEMA PERIPHERAL [None]
  - PARAESTHESIA [None]
